FAERS Safety Report 6333224-7 (Version None)
Quarter: 2009Q3

REPORT INFORMATION
  Report Type: 
  Country: None (occurrence: None)
  Receive Date: 20090826
  Receipt Date: 20090811
  Transmission Date: 20100115
  Serious: Yes (Other)
  Sender: FDA-Public Use
  Company Number: 2009-0348

PATIENT
  Age: 51 Year
  Sex: Female

DRUGS (2)
  1. DYSPORT [Suspect]
     Indication: SKIN WRINKLING
     Dosage: 90 UNITS (NOT REPORTED,SINGLE THERAPY); 150 UNITS (NOT REPORTED,NOT REPORTED)
     Dates: start: 20090218, end: 20090218
  2. DYSPORT [Suspect]
     Indication: SKIN WRINKLING
     Dosage: 90 UNITS (NOT REPORTED,SINGLE THERAPY); 150 UNITS (NOT REPORTED,NOT REPORTED)
     Dates: start: 20030516

REACTIONS (3)
  - DIPLOPIA [None]
  - DRY MOUTH [None]
  - EYELID PTOSIS [None]
